FAERS Safety Report 7335821-9 (Version None)
Quarter: 2011Q1

REPORT INFORMATION
  Report Type: 
  Country: None (occurrence: None)
  Receive Date: 20110307
  Receipt Date: 20110225
  Transmission Date: 20110831
  Serious: Yes (Life-Threatening, Hospitalization, Other)
  Sender: FDA-Public Use
  Company Number: US-MERCK-1012USA02982

PATIENT
  Age: 84 Year
  Sex: Male
  Weight: 76 kg

DRUGS (7)
  1. ALOXI [Suspect]
     Indication: PROPHYLACTIC CHEMOTHERAPY
     Route: 042
     Dates: start: 20101112
  2. AVASTIN [Concomitant]
     Indication: COLON CANCER
     Route: 065
  3. DECADRON [Suspect]
     Indication: COLON CANCER
     Route: 048
  4. LEUCOVORIN CALCIUM [Concomitant]
     Indication: COLON CANCER
     Route: 065
  5. ELOXATIN [Concomitant]
     Indication: COLON CANCER
     Route: 065
  6. FLUOROURACIL [Concomitant]
     Indication: COLON CANCER
     Route: 065
  7. ALOXI [Suspect]
     Indication: COLON CANCER
     Route: 042
     Dates: start: 20101112

REACTIONS (1)
  - CARDIAC ARREST [None]
